FAERS Safety Report 10272222 (Version 1)
Quarter: 2014Q3

REPORT INFORMATION
  Report Type: Report from Study
  Country: US (occurrence: US)
  Receive Date: 20140702
  Receipt Date: 20140702
  Transmission Date: 20150326
  Serious: Yes (Other)
  Sender: FDA-Public Use
  Company Number: US-BIOGENIDEC-2014BI062193

PATIENT
  Sex: Female

DRUGS (1)
  1. TYSABRI [Suspect]
     Active Substance: NATALIZUMAB
     Indication: MULTIPLE SCLEROSIS
     Route: 042
     Dates: start: 20080506, end: 20140218

REACTIONS (3)
  - Respiratory disorder [Unknown]
  - General symptom [Recovered/Resolved]
  - Hysterotomy [Recovered/Resolved]

NARRATIVE: CASE EVENT DATE: 2013
